FAERS Safety Report 22829806 (Version 2)
Quarter: 2024Q1

REPORT INFORMATION
  Report Type: Spontaneous
  Country: RU (occurrence: RU)
  Receive Date: 20230816
  Receipt Date: 20240223
  Transmission Date: 20240409
  Serious: Yes (Life-Threatening, Hospitalization)
  Sender: FDA-Public Use
  Company Number: DEX 2023-0123(0)

PATIENT
  Age: 17 Year
  Sex: Male

DRUGS (8)
  1. DEXMEDETOMIDINE HYDROCHLORIDE [Suspect]
     Active Substance: DEXMEDETOMIDINE HYDROCHLORIDE
     Indication: Sedative therapy
     Dosage: 1.0 ML EQUAL TO 100 MCG, THEN 0.5 MCG/KG/H (100 MCG)
     Route: 042
     Dates: start: 20230731, end: 20230731
  2. DEXMEDETOMIDINE HYDROCHLORIDE [Suspect]
     Active Substance: DEXMEDETOMIDINE HYDROCHLORIDE
     Dosage: 0.5 UG/KG, 1 HR
     Route: 042
     Dates: start: 20230731, end: 20230731
  3. FENTANYL [Suspect]
     Active Substance: FENTANYL\FENTANYL CITRATE
     Indication: General anaesthesia
     Dosage: 4.0 ML (200 MCG)-INDUCTION OF ANAESTHESIA (200 MCG)
     Route: 042
     Dates: start: 20230731, end: 20230731
  4. FENTANYL [Suspect]
     Active Substance: FENTANYL\FENTANYL CITRATE
     Dosage: 50 MCG, 1 HR
     Route: 042
     Dates: start: 20230731, end: 20230731
  5. SEVOFLURANE [Suspect]
     Active Substance: SEVOFLURANE
     Indication: General anaesthesia
     Dosage: 8 PERCENT THEN 1.1 PERCENT
     Route: 065
     Dates: start: 20230731, end: 20230731
  6. CEFOPERAZONE SODIUM\SULBACTAM SODIUM [Suspect]
     Active Substance: CEFOPERAZONE SODIUM\SULBACTAM SODIUM
     Indication: Antibiotic prophylaxis
     Dosage: 2000 MILLIGRAM
     Route: 065
     Dates: start: 20230731, end: 20230731
  7. ROCURONIUM BROMIDE [Concomitant]
     Active Substance: ROCURONIUM BROMIDE
     Indication: General anaesthesia
     Dosage: 50 MG, THEN 0.3 MG/KG/H
     Route: 042
     Dates: start: 20230731, end: 20230731
  8. MIDAZOLAM [Concomitant]
     Active Substance: MIDAZOLAM
     Indication: General anaesthesia
     Dosage: 6.0 ML=30 MG (30 MG)
     Route: 042
     Dates: start: 20230731, end: 20230731

REACTIONS (7)
  - Cardiac arrest [Recovering/Resolving]
  - Hypocapnia [Unknown]
  - Oxygen saturation decreased [Unknown]
  - Hypotension [Unknown]
  - Hyperaemia [Unknown]
  - Hypotonia [Unknown]
  - Product administered to patient of inappropriate age [Unknown]

NARRATIVE: CASE EVENT DATE: 20230731
